FAERS Safety Report 9753588 (Version 1)
Quarter: 2013Q4

REPORT INFORMATION
  Report Type: Spontaneous
  Country: US (occurrence: None)
  Receive Date: 20131211
  Receipt Date: 20131211
  Transmission Date: 20140711
  Serious: Yes (Other)
  Sender: FDA-Public Use
  Company Number: AUR-APL-2013-10255

PATIENT
  Age: 26 Year
  Sex: Female

DRUGS (1)
  1. LISINOPRIL (LISINOPRIL) [Suspect]
     Indication: FOCAL SEGMENTAL GLOMERULOSCLEROSIS

REACTIONS (1)
  - Small bowel angioedema [None]
